FAERS Safety Report 16765452 (Version 5)
Quarter: 2019Q3

REPORT INFORMATION
  Report Type: Report from Study
  Country: DK (occurrence: DK)
  Receive Date: 20190903
  Receipt Date: 20190920
  Transmission Date: 20191005
  Serious: Yes (Hospitalization)
  Sender: FDA-Public Use
  Company Number: DK-GLAXOSMITHKLINE-DK2019GSK157168

PATIENT
  Age: 76 Year
  Sex: Female
  Weight: 74 kg

DRUGS (9)
  1. TAZOBACTAM [Concomitant]
     Active Substance: TAZOBACTAM
     Dosage: 1 UNK, UNK
     Route: 042
     Dates: start: 20190809, end: 20190816
  2. FURIX [Concomitant]
     Dosage: 750 UNK, UNK
     Route: 048
     Dates: start: 20190813, end: 20190814
  3. FURIX [Concomitant]
     Dosage: 500 UNK, UNK
     Route: 048
     Dates: start: 20190812, end: 20190813
  4. FURIX [Concomitant]
     Dosage: 375 UNK, UNK
     Route: 048
     Dates: start: 20190815, end: 20190815
  5. BLINDED DAPRODUSTAT [Suspect]
     Active Substance: DAPRODUSTAT
     Indication: NEPHROGENIC ANAEMIA
     Dosage: UNK
     Dates: start: 20180208
  6. BLINDED DARBEPOETIN ALFA [Suspect]
     Active Substance: DARBEPOETIN ALFA
     Indication: NEPHROGENIC ANAEMIA
     Dosage: UNK
     Dates: start: 20180208
  7. BLINDED DARBEPOETIN ALFA [Suspect]
     Active Substance: DARBEPOETIN ALFA
     Indication: NEPHROGENIC ANAEMIA
     Dosage: UNK
     Dates: start: 20180208
  8. AMOXILLIN [Concomitant]
     Active Substance: AMOXICILLIN
     Dosage: 1500 UNK, UNK
     Route: 048
     Dates: start: 20190816, end: 20190822
  9. ONDANSETRON [Concomitant]
     Active Substance: ONDANSETRON
     Indication: NAUSEA
     Dosage: 4 UNK, UNK
     Route: 042
     Dates: start: 20190812, end: 20190815

REACTIONS (2)
  - Condition aggravated [Recovered/Resolved]
  - Intermittent claudication [Recovered/Resolved]

NARRATIVE: CASE EVENT DATE: 20190807
